FAERS Safety Report 10059025 (Version 1)
Quarter: 2014Q2

REPORT INFORMATION
  Report Type: Spontaneous
  Country: US (occurrence: US)
  Receive Date: 20140404
  Receipt Date: 20140404
  Transmission Date: 20141212
  Serious: Yes (Hospitalization)
  Sender: FDA-Public Use
  Company Number: US-BAXTER-2014BAX016239

PATIENT
  Sex: Male

DRUGS (1)
  1. DIANEAL LOW CALCIUM [Suspect]
     Indication: PERITONEAL DIALYSIS
     Route: 033

REACTIONS (6)
  - Blood pressure abnormal [Unknown]
  - Peritoneal dialysis complication [Unknown]
  - Dyspnoea [Unknown]
  - Vomiting [Unknown]
  - Abdominal distension [Unknown]
  - Abdominal pain [Unknown]
